FAERS Safety Report 6260739-2 (Version None)
Quarter: 2009Q3

REPORT INFORMATION
  Report Type: 
  Country: None (occurrence: None)
  Receive Date: 20090708
  Receipt Date: 20090629
  Transmission Date: 20100115
  Serious: Yes (Hospitalization)
  Sender: FDA-Public Use
  Company Number: FR-MERCK-0906FRA00131

PATIENT
  Age: 86 Year
  Sex: Female

DRUGS (12)
  1. EMEND [Suspect]
     Indication: PROPHYLAXIS OF NAUSEA AND VOMITING
     Route: 048
     Dates: start: 20090227
  2. OXALIPLATIN [Suspect]
     Indication: GASTRIC CANCER
     Route: 041
     Dates: start: 20090213, end: 20090213
  3. OXALIPLATIN [Suspect]
     Route: 041
     Dates: start: 20090227, end: 20090227
  4. RABEPRAZOLE SODIUM [Concomitant]
     Route: 048
     Dates: start: 20081101
  5. PROMESTRIENE [Concomitant]
     Route: 065
  6. SUCRALFATE [Concomitant]
     Route: 065
     Dates: start: 20090101
  7. ALTHIAZIDE AND SPIRONOLACTONE [Suspect]
     Route: 065
     Dates: start: 19990101
  8. ACETAMINOPHEN [Concomitant]
     Route: 065
     Dates: start: 20060101
  9. CHOLECALCIFEROL [Concomitant]
     Route: 065
     Dates: start: 20060101
  10. CHOLECALCIFEROL [Concomitant]
     Route: 065
     Dates: start: 20090213, end: 20090213
  11. FLUOROURACIL [Suspect]
     Indication: GASTRIC CANCER
     Route: 051
     Dates: start: 20090213, end: 20090213
  12. FLUOROURACIL [Suspect]
     Route: 051
     Dates: start: 20090227, end: 20090227

REACTIONS (3)
  - CONVULSION [None]
  - HYPONATRAEMIA [None]
  - VOMITING [None]
